FAERS Safety Report 8918030 (Version 3)
Quarter: 2014Q4

REPORT INFORMATION
  Report Type: Spontaneous
  Country: US (occurrence: US)
  Receive Date: 20121120
  Receipt Date: 20141013
  Transmission Date: 20150529
  Serious: No
  Sender: FDA-Public Use
  Company Number: US-009507513-1211USA007525

PATIENT
  Sex: Female
  Weight: 107.3 kg

DRUGS (2)
  1. NUVARING [Suspect]
     Active Substance: ETHINYL ESTRADIOL\ETONOGESTREL
     Indication: MENORRHAGIA
     Dosage: 0.12 MG/0.015 MG/24 HR; EVERY 28 DAYS: INSERT FOR 21 DAYS, REMOVE AND WAIT 7 DAYS TO INSERT NEW RING
     Route: 067
     Dates: start: 20110929, end: 201111
  2. NUVARING [Suspect]
     Active Substance: ETHINYL ESTRADIOL\ETONOGESTREL
     Indication: DYSMENORRHOEA

REACTIONS (13)
  - Adenomyosis [Unknown]
  - Breast disorder female [Unknown]
  - Hypertension [Unknown]
  - Haemorrhoid operation [Unknown]
  - Ovarian cyst [Unknown]
  - Off label use [Recovered/Resolved]
  - Deep vein thrombosis [Unknown]
  - Bladder neck suspension [Unknown]
  - Cervical cyst [Unknown]
  - Hysterectomy [Unknown]
  - Hypersensitivity [Unknown]
  - Asthma [Unknown]
  - Uterine leiomyoma [Unknown]

NARRATIVE: CASE EVENT DATE: 20110929
